FAERS Safety Report 17575820 (Version 1)
Quarter: 2020Q1

REPORT INFORMATION
  Report Type: Spontaneous
  Country: CN (occurrence: CN)
  Receive Date: 20200324
  Receipt Date: 20200324
  Transmission Date: 20200409
  Serious: Yes (Other)
  Sender: FDA-Public Use
  Company Number: CN-PFIZER INC-2020122890

PATIENT
  Age: 44 Year
  Sex: Male
  Weight: 60 kg

DRUGS (5)
  1. SOLU-MEDROL [Suspect]
     Active Substance: METHYLPREDNISOLONE SODIUM SUCCINATE
     Indication: PNEUMONIA VIRAL
     Dosage: 40 MG, 1X/DAY
     Route: 041
     Dates: start: 20200131, end: 20200201
  2. HUMAN IMMUNOGLOBULIN (PH4) [Concomitant]
     Active Substance: HUMAN IMMUNOGLOBULIN G
     Indication: PNEUMONIA VIRAL
     Dosage: 20 G, 1X/DAY
     Route: 041
     Dates: start: 20200131, end: 20200203
  3. AVELOX [Concomitant]
     Active Substance: MOXIFLOXACIN HYDROCHLORIDE
     Indication: PNEUMONIA VIRAL
     Dosage: 0.4 G, 1X/DAY
     Route: 041
     Dates: start: 20200131, end: 20200203
  4. SODIUM CHLORIDE. [Concomitant]
     Active Substance: SODIUM CHLORIDE
     Indication: VEHICLE SOLUTION USE
     Dosage: 100 ML, 1X/DAY
     Route: 041
     Dates: start: 20200131, end: 20200201
  5. INTERFERON ALFA-2B RECOMBINANT [Concomitant]
     Indication: PNEUMONIA VIRAL
     Dosage: 5 MILLION IU, 2X/DAY
     Dates: start: 20200131, end: 20200202

REACTIONS (1)
  - Hypokalaemia [Recovered/Resolved]

NARRATIVE: CASE EVENT DATE: 20200201
